FAERS Safety Report 9491914 (Version 1)
Quarter: 2013Q3

REPORT INFORMATION
  Report Type: Spontaneous
  Country: US (occurrence: US)
  Receive Date: 20130830
  Receipt Date: 20130830
  Transmission Date: 20140515
  Serious: Yes (Other)
  Sender: FDA-Public Use
  Company Number: US-DYAX CORP.-2013DX000161

PATIENT
  Age: 24 Year
  Sex: Female
  Weight: 52.66 kg

DRUGS (4)
  1. KALBITOR [Suspect]
     Indication: HEREDITARY ANGIOEDEMA
     Route: 058
     Dates: start: 20130818, end: 20130818
  2. KALBITOR [Suspect]
     Route: 058
     Dates: start: 20130808, end: 20130808
  3. KALBITOR [Suspect]
     Route: 058
     Dates: start: 201302
  4. ALPRAZOLAM [Concomitant]
     Indication: ANXIETY
     Route: 048

REACTIONS (4)
  - Loss of consciousness [Recovered/Resolved]
  - Hypersensitivity [Recovered/Resolved]
  - Tachycardia [Recovered/Resolved]
  - Hereditary angioedema [Recovering/Resolving]
